FAERS Safety Report 8167415-X (Version None)
Quarter: 2012Q1

REPORT INFORMATION
  Report Type: 
  Country: None (occurrence: None)
  Receive Date: 20120227
  Receipt Date: 20120220
  Transmission Date: 20120608
  Serious: Yes (Death, Life-Threatening, Hospitalization, Other)
  Sender: FDA-Public Use
  Company Number: GB-ELI_LILLY_AND_COMPANY-GB201110007727

PATIENT
  Sex: Male
  Weight: 68.2 kg

DRUGS (5)
  1. EFFIENT [Suspect]
     Dosage: 10 MG, QD
     Route: 048
     Dates: start: 20111004
  2. ASPIRIN [Concomitant]
     Dosage: UNK, UNKNOWN
  3. TICAGRELOR [Concomitant]
     Dosage: UNK, UNKNOWN
  4. EFFIENT [Suspect]
     Indication: STENT PLACEMENT
     Dosage: LOADING DOSE
     Dates: start: 20111003
  5. CLOPIDOGREL [Concomitant]
     Dosage: UNK, UNKNOWN

REACTIONS (4)
  - DEATH [None]
  - VENTRICULAR TACHYCARDIA [None]
  - CARDIAC ARREST [None]
  - THROMBOSIS IN DEVICE [None]
